FAERS Safety Report 8543339-0 (Version None)
Quarter: 2012Q3

REPORT INFORMATION
  Report Type: 
  Country: None (occurrence: None)
  Receive Date: 20120727
  Receipt Date: 20120717
  Transmission Date: 20120928
  Serious: No
  Sender: FDA-Public Use
  Company Number: US-BAYER-2012-072641

PATIENT
  Sex: Female

DRUGS (3)
  1. ADVIL [Concomitant]
  2. ALEVE (CAPLET) [Suspect]
     Indication: BACK PAIN
     Dosage: UNK
     Route: 048
  3. TYLENOL (CAPLET) [Concomitant]

REACTIONS (1)
  - BACK PAIN [None]
